FAERS Safety Report 22520402 (Version 1)
Quarter: 2023Q2

REPORT INFORMATION
  Report Type: Spontaneous
  Country: US (occurrence: None)
  Receive Date: 20230602
  Receipt Date: 20230602
  Transmission Date: 20230722
  Serious: Yes (Hospitalization)
  Sender: FDA-Public Use
  Company Number: None

PATIENT
  Sex: Male

DRUGS (1)
  1. ETOPOSIDE [Suspect]
     Active Substance: ETOPOSIDE
     Indication: Renal cancer
     Dosage: FREQUENCY : AS DIRECTED;? INFUSE 158MG INTRAVENOUSLY ON DAY 1, 2, 3 OF EACH 21-DAY CYCLE.;
     Route: 042
     Dates: start: 202302

REACTIONS (1)
  - Adverse drug reaction [None]
